FAERS Safety Report 19278440 (Version 1)
Quarter: 2021Q2

REPORT INFORMATION
  Report Type: Spontaneous
  Country: JP (occurrence: JP)
  Receive Date: 20210520
  Receipt Date: 20210520
  Transmission Date: 20210717
  Serious: Yes (Other)
  Sender: FDA-Public Use
  Company Number: JP-009507513-2105JPN001025J

PATIENT
  Age: 64 Year
  Sex: Female

DRUGS (4)
  1. AXITINIB [Concomitant]
     Active Substance: AXITINIB
     Dosage: UNK
     Route: 048
     Dates: start: 202105
  2. KEYTRUDA [Suspect]
     Active Substance: PEMBROLIZUMAB
     Indication: RENAL CELL CARCINOMA
     Dosage: 200 MILLIGRAM, Q3W
     Route: 041
     Dates: start: 20210108, end: 20210409
  3. AXITINIB [Concomitant]
     Active Substance: AXITINIB
     Dosage: UNK
     Route: 048
     Dates: start: 20210330, end: 20210409
  4. AXITINIB [Concomitant]
     Active Substance: AXITINIB
     Indication: RENAL CELL CARCINOMA
     Dosage: UNK
     Route: 048
     Dates: start: 20210108, end: 2021

REACTIONS (3)
  - Palmar-plantar erythrodysaesthesia syndrome [Unknown]
  - Dysphonia [Unknown]
  - Immune-mediated hepatic disorder [Not Recovered/Not Resolved]

NARRATIVE: CASE EVENT DATE: 20210216
